FAERS Safety Report 6839250-3 (Version None)
Quarter: 2010Q3

REPORT INFORMATION
  Report Type: 
  Country: None (occurrence: None)
  Receive Date: 20100709
  Receipt Date: 20100630
  Transmission Date: 20110219
  Serious: Yes (Death)
  Sender: FDA-Public Use
  Company Number: A-CH2010-37762

PATIENT
  Age: 66 Year
  Sex: Female

DRUGS (13)
  1. TRACLEER [Suspect]
     Indication: PULMONARY ARTERIAL HYPERTENSION
     Dosage: 125 MG, BID, ORAL; 62.5 MG, BID, ORAL
     Route: 048
     Dates: start: 20081106, end: 20081123
  2. TRACLEER [Suspect]
     Indication: PULMONARY ARTERIAL HYPERTENSION
     Dosage: 125 MG, BID, ORAL; 62.5 MG, BID, ORAL
     Route: 048
     Dates: start: 20081124, end: 20100521
  3. LASIX [Concomitant]
  4. HYDRALAZINE HCL [Concomitant]
  5. SILDENAFIL CITRATE [Concomitant]
  6. TEVETEN [Concomitant]
  7. INDAPAMIDE [Concomitant]
  8. OSTELIN (ERGOCALCIFEROL) [Concomitant]
  9. PLAVIX [Concomitant]
  10. PANTOPRAZOLE SODIUM [Concomitant]
  11. COVERSYL (INDAPAMIDE) [Concomitant]
  12. LIPITOR [Concomitant]
  13. ARANESP [Concomitant]

REACTIONS (2)
  - CARDIAC FAILURE CONGESTIVE [None]
  - MYOCARDIAL ISCHAEMIA [None]
